FAERS Safety Report 5193350-5 (Version None)
Quarter: 2006Q4

REPORT INFORMATION
  Report Type: 
  Country: None (occurrence: None)
  Receive Date: 20061228
  Receipt Date: 20061010
  Transmission Date: 20070319
  Serious: No
  Sender: FDA-Public Use
  Company Number: US-GLAXOSMITHKLINE-A0623083A

PATIENT
  Age: 77 Year
  Sex: Male

DRUGS (7)
  1. AVODART [Suspect]
     Indication: BENIGN PROSTATIC HYPERPLASIA
     Dosage: .5MG PER DAY
     Route: 048
  2. LISINOPRIL [Concomitant]
  3. DIAMPROMIDE [Concomitant]
  4. TOPROL-XL [Concomitant]
  5. ISOSORBIDE MONONITRATE [Concomitant]
  6. COUMADIN [Concomitant]
  7. SIMVASTATIN [Concomitant]

REACTIONS (4)
  - ILL-DEFINED DISORDER [None]
  - MUSCLE TWITCHING [None]
  - PAIN [None]
  - SWELLING [None]
